FAERS Safety Report 7618136-0 (Version None)
Quarter: 2011Q3

REPORT INFORMATION
  Report Type: 
  Country: None (occurrence: None)
  Receive Date: 20110718
  Receipt Date: 20110624
  Transmission Date: 20111222
  Serious: Yes (Other)
  Sender: FDA-Public Use
  Company Number: US-GLAXOSMITHKLINE-A0794184A

PATIENT
  Sex: Female
  Weight: 80.9 kg

DRUGS (12)
  1. PREMARIN [Concomitant]
  2. CADUET [Concomitant]
  3. ASMANEX TWISTHALER [Concomitant]
  4. AVANDIA [Suspect]
     Indication: DIABETES MELLITUS
     Dosage: 8MG PER DAY
     Route: 048
     Dates: start: 20000201, end: 20070129
  5. NASONEX [Concomitant]
  6. ALBUTEROL SULFATE AUTOHALER [Concomitant]
  7. PRILOSEC [Concomitant]
  8. AVANDAMET [Suspect]
     Indication: DIABETES MELLITUS
     Route: 048
     Dates: start: 20070129, end: 20070604
  9. STARLIX [Concomitant]
  10. METFORMIN HCL [Concomitant]
  11. LISINOPRIL [Concomitant]
  12. FLUOXETINE [Concomitant]

REACTIONS (1)
  - MYOCARDIAL INFARCTION [None]
